FAERS Safety Report 15595559 (Version 1)
Quarter: 2018Q4

REPORT INFORMATION
  Report Type: Report from Study
  Country: None (occurrence: BR)
  Receive Date: 20181107
  Receipt Date: 20181107
  Transmission Date: 20190205
  Serious: Yes (Other)
  Sender: FDA-Public Use
  Company Number: BR-ABBVIE-18K-020-2542704-00

PATIENT
  Sex: Female

DRUGS (1)
  1. HUMIRA [Suspect]
     Active Substance: ADALIMUMAB
     Indication: CROHN^S DISEASE
     Route: 058
     Dates: start: 20180712

REACTIONS (7)
  - Injection site swelling [Recovered/Resolved]
  - Pain [Recovering/Resolving]
  - Gait inability [Unknown]
  - Injection site warmth [Recovered/Resolved]
  - Injection site hypersensitivity [Recovered/Resolved]
  - Injection site erythema [Recovered/Resolved]
  - Bedridden [Recovered/Resolved]

NARRATIVE: CASE EVENT DATE: 2018
